FAERS Safety Report 14317758 (Version 1)
Quarter: 2017Q4

REPORT INFORMATION
  Report Type: Spontaneous
  Country: US (occurrence: US)
  Receive Date: 20171221
  Receipt Date: 20171221
  Transmission Date: 20180321
  Serious: Yes (Life-Threatening, Disabling, Other)
  Sender: FDA-Public Use
  Company Number: None

PATIENT
  Age: 51 Year
  Sex: Female
  Weight: 78.3 kg

DRUGS (1)
  1. TESTOSTERONE. [Suspect]
     Active Substance: TESTOSTERONE
     Indication: BLOOD TESTOSTERONE DECREASED
     Dosage: ?          OTHER FREQUENCY:EVERY THREE MONTHS;?
     Route: 058
     Dates: start: 20090728, end: 20120914

REACTIONS (11)
  - Diabetes mellitus [None]
  - Blood testosterone abnormal [None]
  - Mood swings [None]
  - Alopecia [None]
  - Hair growth abnormal [None]
  - Abnormal organ growth [None]
  - Brain injury [None]
  - Gender dysphoria [None]
  - Female sexual dysfunction [None]
  - Drug abuser [None]
  - Abnormal behaviour [None]

NARRATIVE: CASE EVENT DATE: 20090728
